FAERS Safety Report 12248915 (Version 1)
Quarter: 2016Q2

REPORT INFORMATION
  Report Type: Not Available
  Country: FR (occurrence: FR)
  Receive Date: 20160408
  Receipt Date: 20160408
  Transmission Date: 20160815
  Serious: Yes (Other)
  Sender: FDA-Public Use
  Company Number: FR-MUNDIPHARMA DS AND PHARMACOVIGILANCE-GBR-2016-0034210

PATIENT
  Age: 46 Year
  Sex: Male

DRUGS (8)
  1. SPASFON                            /00765801/ [Concomitant]
     Active Substance: PHLOROGLUCINOL\1,3,5-TRIMETHOXYBENZENE
  2. OXYNORM [Suspect]
     Active Substance: OXYCODONE HYDROCHLORIDE
     Indication: ABDOMINAL PAIN
     Dosage: 30 MG, DAILY
     Route: 048
     Dates: start: 20160109, end: 20160118
  3. ACUPAN [Concomitant]
     Active Substance: NEFOPAM HYDROCHLORIDE
  4. HEPT-A-MYL [Suspect]
     Active Substance: HEPTAMINOL HYDROCHLORIDE
     Indication: ORTHOSTATIC HYPOTENSION
     Dosage: UNK
     Route: 048
     Dates: start: 20160109, end: 20160111
  5. FORTUM                             /00559701/ [Concomitant]
     Active Substance: CEFTAZIDIME
  6. AMIKACINE                          /00391001/ [Concomitant]
     Active Substance: AMIKACIN
  7. CANCIDAS [Concomitant]
     Active Substance: CASPOFUNGIN ACETATE
  8. SUBUTEX [Concomitant]
     Active Substance: BUPRENORPHINE HYDROCHLORIDE
     Indication: DRUG REHABILITATION

REACTIONS (1)
  - Urinary retention [Recovered/Resolved]

NARRATIVE: CASE EVENT DATE: 20160111
